FAERS Safety Report 4602971-7 (Version None)
Quarter: 2005Q1

REPORT INFORMATION
  Report Type: 
  Country: None (occurrence: None)
  Receive Date: 20050307
  Receipt Date: 20050218
  Transmission Date: 20050727
  Serious: Yes (Death)
  Sender: FDA-Public Use
  Company Number: 2005AC00138

PATIENT
  Age: 54 Year
  Sex: Female
  Weight: 59 kg

DRUGS (12)
  1. BUPIVACAINE [Suspect]
     Indication: ANAESTHESIA
     Dosage: 10 ML ED
     Route: 008
  2. BUPIVACAINE [Suspect]
     Indication: POSTOPERATIVE ANALGESIA
     Dosage: 10 ML ED
     Route: 008
  3. BUPIVACAINE [Suspect]
     Indication: ANAESTHESIA
     Dosage: 15 MG PRN
  4. BUPIVACAINE [Suspect]
     Indication: POSTOPERATIVE ANALGESIA
     Dosage: 15 MG PRN
  5. LIGNOCAINE [Suspect]
     Indication: ANAESTHESIA
     Dosage: 2 ML ONCE ED
     Route: 008
  6. MORPHINE [Suspect]
     Indication: ANAESTHESIA
     Dosage: 10 ML ED
     Route: 008
  7. MORPHINE [Suspect]
     Indication: POSTOPERATIVE ANALGESIA
     Dosage: 10 ML ED
     Route: 008
  8. MORPHINE [Suspect]
     Indication: ANAESTHESIA
     Dosage: 0.5 MG PRN
  9. MORPHINE [Suspect]
     Indication: POSTOPERATIVE ANALGESIA
     Dosage: 0.5 MG PRN
  10. FENTANYL [Suspect]
     Indication: GENERAL ANAESTHESIA
     Dosage: 150 UG ONCE
  11. THIOPENTONE [Suspect]
     Indication: GENERAL ANAESTHESIA
     Dosage: 360 MG ONCE
  12. ATRACURIUM [Suspect]
     Indication: GENERAL ANAESTHESIA
     Dosage: 30 MG ONCE

REACTIONS (15)
  - APALLIC SYNDROME [None]
  - BLOOD PRESSURE FLUCTUATION [None]
  - BLOOD PRESSURE INADEQUATELY CONTROLLED [None]
  - BRAIN HERNIATION [None]
  - BRAIN MASS [None]
  - BRAIN SCAN ABNORMAL [None]
  - CARDIAC ARREST [None]
  - CHOKING [None]
  - DISEASE PROGRESSION [None]
  - ELECTROLYTE IMBALANCE [None]
  - HYDROCEPHALUS [None]
  - LETHARGY [None]
  - NAUSEA [None]
  - RESPIRATORY ARREST [None]
  - TUMOUR HAEMORRHAGE [None]
